FAERS Safety Report 7216060-9 (Version None)
Quarter: 2011Q1

REPORT INFORMATION
  Report Type: 
  Country: None (occurrence: None)
  Receive Date: 20110107
  Receipt Date: 20101228
  Transmission Date: 20110831
  Serious: Yes (Other)
  Sender: FDA-Public Use
  Company Number: ES-GENENTECH-311912

PATIENT
  Age: 36 Year
  Sex: Male

DRUGS (1)
  1. MABTHERA [Suspect]
     Indication: CASTLEMAN'S DISEASE
     Dosage: 600 MG, UNK
     Route: 042
     Dates: start: 20101112

REACTIONS (2)
  - SCOTOMA [None]
  - VITREOUS DETACHMENT [None]
